FAERS Safety Report 21601539 (Version 1)
Quarter: 2022Q4

REPORT INFORMATION
  Report Type: Spontaneous
  Country: US (occurrence: None)
  Receive Date: 20221115
  Receipt Date: 20221115
  Transmission Date: 20230113
  Serious: No
  Sender: FDA-Public Use
  Company Number: None

PATIENT
  Age: 54 Year
  Sex: Female

DRUGS (1)
  1. OTEZLA [Suspect]
     Active Substance: APREMILAST
     Dosage: 30MG DAILY ORAL
     Route: 048
     Dates: start: 202101

REACTIONS (1)
  - Radiotherapy [None]

NARRATIVE: CASE EVENT DATE: 20221115
